FAERS Safety Report 10584719 (Version 4)
Quarter: 2015Q1

REPORT INFORMATION
  Report Type: Spontaneous
  Country: US (occurrence: None)
  Receive Date: 20141112
  Receipt Date: 20150115
  Transmission Date: 20150720
  Serious: Yes (Other)
  Sender: FDA-Public Use
  Company Number: ADR-2014-02026

PATIENT
  Age: 53 Year
  Sex: Female

DRUGS (2)
  1. LIORESAL [Suspect]
     Active Substance: BACLOFEN
     Indication: MUSCLE SPASTICITY
     Dosage: 330/DAY
  2. MORPHINE [Suspect]
     Active Substance: MORPHINE
     Dosage: SEE B5

REACTIONS (14)
  - Disease recurrence [None]
  - Fall [None]
  - Drug effect decreased [None]
  - Somnolence [None]
  - Therapy change [None]
  - Musculoskeletal stiffness [None]
  - Abdominal pain upper [None]
  - Pain [None]
  - Gastrooesophageal reflux disease [None]
  - Muscle spasticity [None]
  - Device issue [None]
  - Muscle spasms [None]
  - Device battery issue [None]
  - Condition aggravated [None]
